FAERS Safety Report 6176326-0 (Version None)
Quarter: 2009Q2

REPORT INFORMATION
  Report Type: 
  Country: None (occurrence: None)
  Receive Date: 20090501
  Receipt Date: 20090420
  Transmission Date: 20091009
  Serious: Yes (Hospitalization)
  Sender: FDA-Public Use
  Company Number: US-JNJFOC-20090404923

PATIENT
  Sex: Male
  Weight: 74.84 kg

DRUGS (2)
  1. REMICADE [Suspect]
     Indication: CROHN'S DISEASE
     Dosage: AFTER 4 YEARS, STOPPED TREATMENTS FOR 9 MONTHS DUE TO INSURANCE PROBLEMS
     Route: 042
  2. HUMIRA [Concomitant]
     Indication: CROHN'S DISEASE

REACTIONS (8)
  - ACNE [None]
  - COLECTOMY [None]
  - DISTURBANCE IN ATTENTION [None]
  - DRUG INEFFECTIVE [None]
  - FISTULA [None]
  - PREGNANCY OF PARTNER [None]
  - RASH [None]
  - URTICARIA [None]
